FAERS Safety Report 5318391-6 (Version None)
Quarter: 2007Q2

REPORT INFORMATION
  Report Type: 
  Country: None (occurrence: None)
  Receive Date: 20070501
  Receipt Date: 20070420
  Transmission Date: 20071010
  Serious: Yes (Hospitalization)
  Sender: FDA-Public Use
  Company Number: URSO-2007-022

PATIENT
  Age: 26 Year
  Sex: Female

DRUGS (7)
  1. URSO 250 [Suspect]
     Indication: CHOLELITHIASIS
     Dosage: 3G PO
     Route: 048
     Dates: start: 20070220, end: 20070312
  2. LEVOTHYROXINE SODIUM [Suspect]
     Indication: HYPOTHYROIDISM
     Dosage: 50 UG PO
     Route: 048
     Dates: start: 20060629
  3. ALDACTONE [Suspect]
     Indication: RENAL FAILURE
     Dosage: 25 MG PO
     Route: 048
     Dates: start: 20060705
  4. LASIX [Suspect]
     Indication: RENAL FAILURE
     Dosage: 80 MG PO
     Route: 048
     Dates: start: 20060712
  5. LANSOPRAZOLE [Suspect]
     Indication: REFLUX OESOPHAGITIS
     Dosage: 30 MG PO
     Route: 048
     Dates: start: 20060716
  6. CLONAZEPAM [Suspect]
     Indication: SUBDURAL HAEMORRHAGE
     Dosage: 2.0 MG PO
     Route: 048
     Dates: start: 20060719
  7. RHUBARB [Suspect]
     Indication: CONSTIPATION
     Dosage: 1 G PO
     Route: 048
     Dates: start: 20061208

REACTIONS (4)
  - CHOLELITHIASIS [None]
  - DERMATITIS EXFOLIATIVE [None]
  - ERYTHEMA [None]
  - THROMBOCYTOPENIA [None]
